FAERS Safety Report 9957034 (Version 1)
Quarter: 2014Q1

REPORT INFORMATION
  Report Type: Report from Study
  Country: US (occurrence: US)
  Receive Date: 20140304
  Receipt Date: 20140304
  Transmission Date: 20141002
  Serious: No
  Sender: FDA-Public Use
  Company Number: US-ABBVIE-13P-163-1096430-00

PATIENT
  Age: 63 Year
  Sex: Female

DRUGS (3)
  1. HUMIRA [Suspect]
     Indication: RHEUMATOID ARTHRITIS
     Dates: start: 201206, end: 201304
  2. PREDNISONE [Concomitant]
     Indication: RHEUMATOID ARTHRITIS
  3. ALEVE [Concomitant]
     Indication: RHEUMATOID ARTHRITIS

REACTIONS (9)
  - Fall [Recovered/Resolved]
  - Contusion [Not Recovered/Not Resolved]
  - Injection site pain [Recovered/Resolved]
  - Joint swelling [Not Recovered/Not Resolved]
  - Finger deformity [Not Recovered/Not Resolved]
  - Drug ineffective [Not Recovered/Not Resolved]
  - Injection site bruising [Recovered/Resolved]
  - Laceration [Not Recovered/Not Resolved]
  - Musculoskeletal stiffness [Not Recovered/Not Resolved]
